FAERS Safety Report 26053311 (Version 1)
Quarter: 2025Q4

REPORT INFORMATION
  Report Type: Spontaneous
  Country: EU (occurrence: None)
  Receive Date: 20251117
  Receipt Date: 20251117
  Transmission Date: 20260117
  Serious: Yes (Other)
  Sender: INFORLIFE
  Company Number: EU-INFO-20250283

PATIENT
  Age: 58 Year
  Sex: Male

DRUGS (2)
  1. CIPROFLOXACIN [Suspect]
     Active Substance: CIPROFLOXACIN
     Indication: Urinary tract infection
  2. DANTROLENE [Concomitant]
     Active Substance: DANTROLENE
     Indication: Neuroleptic malignant syndrome

REACTIONS (2)
  - Malignant catatonia [Recovering/Resolving]
  - Condition aggravated [Recovering/Resolving]
